FAERS Safety Report 7047411-6 (Version None)
Quarter: 2010Q4

REPORT INFORMATION
  Report Type: 
  Country: None (occurrence: None)
  Receive Date: 20101015
  Receipt Date: 20101007
  Transmission Date: 20110411
  Serious: Yes (Hospitalization)
  Sender: FDA-Public Use
  Company Number: FR-ROCHE-732324

PATIENT
  Sex: Male

DRUGS (4)
  1. CELLCEPT [Suspect]
     Route: 048
     Dates: start: 20100121
  2. NEORAL [Suspect]
     Route: 048
     Dates: start: 20100121
  3. NEORAL [Suspect]
     Dosage: DOSE REDUCED
     Route: 048
     Dates: start: 20100701
  4. NEORAL [Suspect]
     Dosage: DOSE INCREASED
     Route: 048
     Dates: start: 20100825, end: 20100910

REACTIONS (2)
  - MOTOR DYSFUNCTION [None]
  - NEUROPATHY PERIPHERAL [None]
